FAERS Safety Report 13113793 (Version 5)
Quarter: 2017Q1

REPORT INFORMATION
  Report Type: Spontaneous
  Country: IT (occurrence: IT)
  Receive Date: 20170113
  Receipt Date: 20170228
  Transmission Date: 20170428
  Serious: Yes (Hospitalization, Other)
  Sender: FDA-Public Use
  Company Number: IT-TEVA-729580ACC

PATIENT
  Age: 84 Year
  Sex: Male

DRUGS (8)
  1. DASABUVIR [Interacting]
     Active Substance: DASABUVIR
     Route: 065
  2. PANTOPRAZOLE [Interacting]
     Active Substance: PANTOPRAZOLE SODIUM
     Indication: PRODUCT USED FOR UNKNOWN INDICATION
     Dosage: 40 MILLIGRAM DAILY;
     Route: 065
  3. RIBAVIRIN. [Interacting]
     Active Substance: RIBAVIRIN
     Indication: HEPATIC CIRRHOSIS
     Route: 065
     Dates: start: 20160206, end: 20160219
  4. OMBITASVIR [Interacting]
     Active Substance: OMBITASVIR
     Indication: HEPATIC CIRRHOSIS
     Route: 065
     Dates: start: 20160206, end: 20160219
  5. DASABUVIR [Interacting]
     Active Substance: DASABUVIR
     Indication: HEPATIC CIRRHOSIS
     Route: 065
     Dates: start: 20160206, end: 20160219
  6. CARVEDILOL. [Suspect]
     Active Substance: CARVEDILOL
     Indication: PRODUCT USED FOR UNKNOWN INDICATION
     Dosage: 12.5 MILLIGRAM DAILY;
     Route: 065
  7. RITONAVIR. [Interacting]
     Active Substance: RITONAVIR
     Indication: HEPATIC CIRRHOSIS
     Route: 065
     Dates: start: 20160206, end: 20160219
  8. PARITAPREVIR [Suspect]
     Active Substance: PARITAPREVIR
     Indication: HEPATIC CIRRHOSIS
     Route: 065

REACTIONS (3)
  - Acute hepatic failure [Recovered/Resolved]
  - Renal injury [Unknown]
  - Drug interaction [Unknown]

NARRATIVE: CASE EVENT DATE: 20160219
